FAERS Safety Report 17376627 (Version 1)
Quarter: 2020Q1

REPORT INFORMATION
  Report Type: Spontaneous
  Country: US (occurrence: US)
  Receive Date: 20200206
  Receipt Date: 20200206
  Transmission Date: 20200409
  Serious: Yes (Other)
  Sender: FDA-Public Use
  Company Number: NVSC2020US025840

PATIENT
  Age: 86 Year
  Sex: Male

DRUGS (1)
  1. LATANOPROST 0.005% W/V EYE DROPS, SOLUTION [Suspect]
     Active Substance: LATANOPROST
     Indication: PRODUCT USED FOR UNKNOWN INDICATION
     Dosage: UNK (2.5)
     Route: 065

REACTIONS (2)
  - Cerebrovascular accident [Unknown]
  - Tremor [Unknown]
